FAERS Safety Report 8768068 (Version 1)
Quarter: 2012Q4

REPORT INFORMATION
  Report Type: 
  Country: DE (occurrence: DE)
  Receive Date: 20120831
  Receipt Date: 20120831
  Transmission Date: 20130627
  Serious: Yes (Hospitalization)
  Sender: FDA-Public Use
  Company Number: DE-ELI_LILLY_AND_COMPANY-DE201207007160

PATIENT
  Sex: Female

DRUGS (3)
  1. FORSTEO [Suspect]
     Indication: OSTEOPOROSIS
     Dosage: UNK, qd
     Route: 058
     Dates: start: 20120105, end: 20120722
  2. BISOHEXAL [Concomitant]
     Dosage: 2.5 mg, qd
  3. EXFORGE [Concomitant]
     Dosage: 5/80 mg once in the evening

REACTIONS (3)
  - Arrhythmia [Recovered/Resolved]
  - Heart rate increased [Recovered/Resolved]
  - Hypotension [Not Recovered/Not Resolved]
